FAERS Safety Report 24353522 (Version 5)
Quarter: 2025Q3

REPORT INFORMATION
  Report Type: Spontaneous
  Country: US (occurrence: US)
  Receive Date: 20240923
  Receipt Date: 20250822
  Transmission Date: 20251021
  Serious: No
  Sender: PFIZER
  Company Number: US-PFIZER INC-PV202400123680

PATIENT
  Age: 79 Year
  Sex: Female

DRUGS (16)
  1. IBRANCE [Suspect]
     Active Substance: PALBOCICLIB
  2. IBRANCE [Suspect]
     Active Substance: PALBOCICLIB
     Route: 048
     Dates: start: 20250728
  3. ASPIRIN [Concomitant]
     Active Substance: ASPIRIN
  4. XGEVA [Concomitant]
     Active Substance: DENOSUMAB
  5. VITAMIN D NOS [Concomitant]
     Active Substance: CHOLECALCIFEROL\ERGOCALCIFEROL
  6. FLUTICASONE [Concomitant]
     Active Substance: FLUTICASONE
  7. TOLTERODINE [Concomitant]
     Active Substance: TOLTERODINE
  8. LETROZOLE [Concomitant]
     Active Substance: LETROZOLE
  9. NITROFURANTOIN [Concomitant]
     Active Substance: NITROFURANTOIN
  10. MELOXICAM [Concomitant]
     Active Substance: MELOXICAM
  11. LORATADINE [Concomitant]
     Active Substance: LORATADINE
  12. ZOLPIDEM [Concomitant]
     Active Substance: ZOLPIDEM TARTRATE
  13. CETIRIZINE [Concomitant]
     Active Substance: CETIRIZINE HYDROCHLORIDE
  14. SIMVASTATIN [Concomitant]
     Active Substance: SIMVASTATIN
  15. OMEPRAZOLE [Concomitant]
     Active Substance: OMEPRAZOLE
  16. LISINOPRIL [Concomitant]
     Active Substance: LISINOPRIL

REACTIONS (6)
  - Fatigue [Unknown]
  - Full blood count abnormal [Unknown]
  - Urinary tract infection [Unknown]
  - Flushing [Unknown]
  - Hot flush [Unknown]
  - White blood cell count decreased [Unknown]
